FAERS Safety Report 17353234 (Version 1)
Quarter: 2020Q1

REPORT INFORMATION
  Report Type: Spontaneous
  Country: CA (occurrence: CA)
  Receive Date: 20200131
  Receipt Date: 20200131
  Transmission Date: 20200409
  Serious: Yes (Hospitalization, Other)
  Sender: FDA-Public Use
  Company Number: CA-ROCHE-2535535

PATIENT
  Age: 13 Year
  Sex: Male

DRUGS (9)
  1. CONCERTA [Concomitant]
     Active Substance: METHYLPHENIDATE HYDROCHLORIDE
     Indication: ATTENTION DEFICIT/HYPERACTIVITY DISORDER
     Route: 065
  2. XOLAIR [Suspect]
     Active Substance: OMALIZUMAB
     Indication: ASTHMA
     Route: 058
     Dates: start: 20180703
  3. XOLAIR [Suspect]
     Active Substance: OMALIZUMAB
     Route: 058
     Dates: start: 20200120
  4. XOLAIR [Suspect]
     Active Substance: OMALIZUMAB
     Route: 058
     Dates: start: 20190117
  5. XOLAIR [Suspect]
     Active Substance: OMALIZUMAB
     Route: 058
     Dates: start: 20190418
  6. ZENHALE [Concomitant]
     Active Substance: FORMOTEROL FUMARATE\MOMETASONE FUROATE
     Indication: ASTHMA
     Route: 055
     Dates: start: 2015
  7. AVAMYS [Concomitant]
     Active Substance: FLUTICASONE FUROATE
     Indication: HYPERSENSITIVITY
     Route: 045
     Dates: start: 2016
  8. VENTOLIN [Concomitant]
     Active Substance: ALBUTEROL SULFATE
     Indication: ASTHMA
     Route: 055
     Dates: start: 2008
  9. RUPALL [Concomitant]
     Active Substance: RUPATADINE FUMARATE
     Indication: HYPERSENSITIVITY
     Route: 048
     Dates: start: 201711

REACTIONS (13)
  - Anaphylactic reaction [Recovering/Resolving]
  - Sensitivity to weather change [Recovering/Resolving]
  - Urticaria [Recovering/Resolving]
  - Pallor [Unknown]
  - Nausea [Unknown]
  - Pharyngeal swelling [Unknown]
  - Oropharyngeal discomfort [Recovered/Resolved]
  - Drug ineffective [Unknown]
  - Middle insomnia [Unknown]
  - Asthma [Unknown]
  - Dizziness [Unknown]
  - Wheezing [Unknown]
  - Lip swelling [Unknown]

NARRATIVE: CASE EVENT DATE: 2019
